FAERS Safety Report 11686299 (Version 1)
Quarter: 2015Q4

REPORT INFORMATION
  Report Type: Spontaneous
  Country: FR (occurrence: FR)
  Receive Date: 20151030
  Receipt Date: 20151030
  Transmission Date: 20160304
  Serious: Yes (Other)
  Sender: FDA-Public Use
  Company Number: FR-BRISTOL-MYERS SQUIBB COMPANY-BMS-2015-072439

PATIENT
  Age: 38 Year
  Sex: Female

DRUGS (5)
  1. YERVOY [Suspect]
     Active Substance: IPILIMUMAB
     Dosage: 246 MG, UNK
     Route: 042
     Dates: start: 20150421
  2. YERVOY [Suspect]
     Active Substance: IPILIMUMAB
     Indication: METASTATIC MALIGNANT MELANOMA
     Dosage: 246 MG, UNK
     Route: 042
     Dates: start: 20150331
  3. YERVOY [Suspect]
     Active Substance: IPILIMUMAB
     Dosage: 246 MG, UNK
     Route: 042
     Dates: start: 20150512
  4. ADEPAL [Concomitant]
     Active Substance: ETHINYL ESTRADIOL\LEVONORGESTREL
     Indication: PRODUCT USED FOR UNKNOWN INDICATION
     Route: 065
  5. YERVOY [Suspect]
     Active Substance: IPILIMUMAB
     Dosage: 246 MG, UNK
     Route: 042
     Dates: start: 20150602

REACTIONS (4)
  - Pruritus [Not Recovered/Not Resolved]
  - Eczema [Recovered/Resolved]
  - Xerosis [Not Recovered/Not Resolved]
  - Hepatic lesion [Unknown]

NARRATIVE: CASE EVENT DATE: 20150412
